FAERS Safety Report 4296763-9 (Version None)
Quarter: 2004Q1

REPORT INFORMATION
  Report Type: 
  Country: None (occurrence: None)
  Receive Date: 20040126
  Receipt Date: 20030910
  Transmission Date: 20041129
  Serious: No
  Sender: FDA-Public Use
  Company Number: USA030946777

PATIENT
  Age: 9 Year
  Sex: Male
  Weight: 32 kg

DRUGS (1)
  1. STRATTERA [Suspect]
     Dosage: 25 MG/DAY
     Dates: start: 20030820

REACTIONS (4)
  - ANXIETY [None]
  - CRYING [None]
  - NERVOUSNESS [None]
  - VOMITING [None]
